FAERS Safety Report 9258842 (Version 2)
Quarter: 2013Q2

REPORT INFORMATION
  Report Type: Spontaneous
  Country: CA (occurrence: CA)
  Receive Date: 20130426
  Receipt Date: 20130507
  Transmission Date: 20140414
  Serious: Yes (Hospitalization)
  Sender: FDA-Public Use
  Company Number: CA-GLAXOSMITHKLINE-A1021066A

PATIENT
  Sex: Female
  Weight: 59.1 kg

DRUGS (1)
  1. ADVAIR [Suspect]
     Indication: DYSPNOEA
     Dosage: 1PUFF PER DAY
     Route: 055

REACTIONS (11)
  - Cataract operation [Unknown]
  - Palpitations [Unknown]
  - Hypotension [Unknown]
  - Arthritis [Unknown]
  - Dyspnoea [Unknown]
  - Visual acuity reduced [Unknown]
  - Retinal disorder [Unknown]
  - Lower limb fracture [Unknown]
  - Weight decreased [Unknown]
  - Osteoporosis [Unknown]
  - Dyspnoea exertional [Unknown]
